FAERS Safety Report 22119039 (Version 9)
Quarter: 2023Q4

REPORT INFORMATION
  Report Type: Spontaneous
  Country: CA (occurrence: CA)
  Receive Date: 20230321
  Receipt Date: 20231201
  Transmission Date: 20240110
  Serious: Yes (Hospitalization, Other)
  Sender: FDA-Public Use
  Company Number: CA-CELLTRION INC.-2022CA020597

PATIENT

DRUGS (10)
  1. INFLECTRA [Suspect]
     Active Substance: INFLIXIMAB-DYYB
     Indication: Colitis ulcerative
     Dosage: 5 MG/KG, WEEKS 0, 2, 6 THEN Q 8 WEEKS
     Route: 042
     Dates: start: 20221128
  2. INFLECTRA [Suspect]
     Active Substance: INFLIXIMAB-DYYB
     Dosage: 5 MG/KG, WEEKS 0, 2, 6 THEN Q 8 WEEKS
     Route: 042
     Dates: start: 20221212, end: 20221212
  3. INFLECTRA [Suspect]
     Active Substance: INFLIXIMAB-DYYB
     Dosage: 5 MG/KG, WEEKS 0, 2, 6 THEN Q 8 WEEKS
     Route: 042
     Dates: start: 20230116
  4. INFLECTRA [Suspect]
     Active Substance: INFLIXIMAB-DYYB
     Dosage: 335 MG, EVERY 8 WEEKS
     Route: 042
     Dates: start: 20230313
  5. INFLECTRA [Suspect]
     Active Substance: INFLIXIMAB-DYYB
     Dosage: 5 MG/KG EVERY 8 WEEK
     Route: 042
     Dates: start: 20230511
  6. INFLECTRA [Suspect]
     Active Substance: INFLIXIMAB-DYYB
     Dosage: 360 MG EVERY 8 WEEK
     Route: 042
     Dates: start: 20230704
  7. INFLECTRA [Suspect]
     Active Substance: INFLIXIMAB-DYYB
     Dosage: 360 MG EVERY 8 WEEK
     Route: 042
     Dates: start: 20230704
  8. INFLECTRA [Suspect]
     Active Substance: INFLIXIMAB-DYYB
     Dosage: 375MG, 8 WEEKS AND 1 DAY
     Route: 042
     Dates: start: 20230830
  9. INFLECTRA [Suspect]
     Active Substance: INFLIXIMAB-DYYB
     Dosage: 400 MG, (5MG/KG), 12 WEEKS (EVERY 8 WEEKS)
     Route: 042
     Dates: start: 20231122
  10. IMURAN [Concomitant]
     Active Substance: AZATHIOPRINE
     Dosage: 1 DF, DOSAGE UNAVAILABLE
     Dates: start: 202210

REACTIONS (11)
  - Arthropathy [Recovering/Resolving]
  - Intestinal obstruction [Not Recovered/Not Resolved]
  - Drug ineffective [Unknown]
  - Blood pressure systolic increased [Not Recovered/Not Resolved]
  - Dysuria [Recovered/Resolved]
  - Constipation [Unknown]
  - Arthralgia [Recovered/Resolved]
  - Poor venous access [Recovered/Resolved]
  - Urinary tract infection [Recovered/Resolved]
  - Off label use [Unknown]
  - Intentional product use issue [Unknown]

NARRATIVE: CASE EVENT DATE: 20220101
